FAERS Safety Report 7583978-7 (Version None)
Quarter: 2011Q2

REPORT INFORMATION
  Report Type: 
  Country: None (occurrence: None)
  Receive Date: 20110623
  Receipt Date: 20110614
  Transmission Date: 20111010
  Serious: Yes (Death, Hospitalization)
  Sender: FDA-Public Use
  Company Number: 2011AC000012

PATIENT
  Age: 79 Year
  Sex: Female

DRUGS (33)
  1. FUROSEMIDE [Concomitant]
  2. PROZAC [Concomitant]
  3. PREVACID [Concomitant]
  4. SIMVASTATIN [Concomitant]
  5. CRESTOR [Concomitant]
  6. DIGOXIN [Suspect]
     Indication: ATRIAL FIBRILLATION
     Dosage: 0.25 MG;DQ;PO
     Route: 048
     Dates: start: 20071213
  7. INSULIN [Concomitant]
  8. VITAMIN TAB [Concomitant]
  9. CLOTRIMAZOLE [Concomitant]
  10. ZOFRAN [Concomitant]
  11. REGLAN [Concomitant]
  12. FLUNISOLIDE [Concomitant]
  13. FLONASE [Concomitant]
  14. LUMIGAN [Concomitant]
  15. CARDIZEM [Concomitant]
  16. CRESTOR [Concomitant]
  17. MULTIVITAMIN [Concomitant]
  18. ASPIRIN [Concomitant]
  19. ACTOS [Concomitant]
  20. SINGULAIR [Concomitant]
  21. ZOCOR [Concomitant]
  22. CARVEDILOL [Concomitant]
  23. LOTRIMIN [Concomitant]
  24. TYLENOL-500 [Concomitant]
  25. LORTAB [Concomitant]
  26. BACTROBAN [Concomitant]
  27. VIBRAMYCIN [Concomitant]
  28. POTASSIUM [Concomitant]
  29. ALPHAGAN [Concomitant]
  30. AZOPT [Concomitant]
  31. CALCIUM CARBONATE [Concomitant]
  32. NITRO-BID [Concomitant]
  33. TIMOLOL MALEATE [Concomitant]

REACTIONS (59)
  - ECONOMIC PROBLEM [None]
  - BLOOD UREA INCREASED [None]
  - HYPOPHAGIA [None]
  - HYPOVOLAEMIA [None]
  - NEUROPATHY PERIPHERAL [None]
  - DRUG DOSE OMISSION [None]
  - DYSPHAGIA [None]
  - MEDIASTINAL DISORDER [None]
  - IRRITABILITY [None]
  - ORTHOSTATIC HYPOTENSION [None]
  - MYOCARDIAL INFARCTION [None]
  - ATELECTASIS [None]
  - ABASIA [None]
  - MUSCLE SPASMS [None]
  - SKIN ULCER [None]
  - BRADYCARDIA [None]
  - DIZZINESS POSTURAL [None]
  - INJURY [None]
  - CARDIAC FAILURE CONGESTIVE [None]
  - TOXICITY TO VARIOUS AGENTS [None]
  - ELECTROCARDIOGRAM T WAVE ABNORMAL [None]
  - PULMONARY VALVE DISEASE [None]
  - ARTHRITIS [None]
  - FLAT AFFECT [None]
  - NO THERAPEUTIC RESPONSE [None]
  - HYPOKALAEMIA [None]
  - MITRAL VALVE INCOMPETENCE [None]
  - OBSTRUCTION [None]
  - ASTHENIA [None]
  - PLEURAL EFFUSION [None]
  - ABNORMAL BEHAVIOUR [None]
  - ATRIAL FIBRILLATION [None]
  - BLOOD POTASSIUM DECREASED [None]
  - ELECTROCARDIOGRAM ST-T SEGMENT ABNORMAL [None]
  - REGURGITATION [None]
  - HEPATIC CYST [None]
  - TRICUSPID VALVE INCOMPETENCE [None]
  - CHEST X-RAY ABNORMAL [None]
  - APNOEA [None]
  - CARDIAC ARREST [None]
  - CHOKING [None]
  - CARDIOMEGALY [None]
  - PAIN [None]
  - CHONDROCALCINOSIS PYROPHOSPHATE [None]
  - DIASTOLIC DYSFUNCTION [None]
  - IMPAIRED GASTRIC EMPTYING [None]
  - PULMONARY OEDEMA [None]
  - BLOOD GLUCOSE INCREASED [None]
  - CARDIOACTIVE DRUG LEVEL INCREASED [None]
  - GASTRIC DISORDER [None]
  - PULMONARY CONGESTION [None]
  - GASTRITIS [None]
  - OESOPHAGEAL STENOSIS [None]
  - NON-CARDIAC CHEST PAIN [None]
  - PHARYNGEAL DISORDER [None]
  - HYPOTENSION [None]
  - ELECTROCARDIOGRAM ABNORMAL [None]
  - EPISTAXIS [None]
  - UNRESPONSIVE TO STIMULI [None]
